FAERS Safety Report 18417766 (Version 2)
Quarter: 2020Q4

REPORT INFORMATION
  Report Type: Spontaneous
  Country: DE (occurrence: DE)
  Receive Date: 20201022
  Receipt Date: 20201112
  Transmission Date: 20210114
  Serious: Yes (Disabling, Other)
  Sender: FDA-Public Use
  Company Number: DE-009507513-2010DEU004853

PATIENT
  Age: 72 Year
  Sex: Male
  Weight: 78 kg

DRUGS (1)
  1. JANUMET [Suspect]
     Active Substance: METFORMIN HYDROCHLORIDE\SITAGLIPTIN PHOSPHATE
     Indication: BLOOD GLUCOSE ABNORMAL
     Dosage: 50/1000 MG, 1 TABLET ONCE DAILY
     Route: 048
     Dates: start: 2018, end: 2019

REACTIONS (5)
  - Osteochondrosis [Unknown]
  - Movement disorder [Recovered/Resolved with Sequelae]
  - Facet joint syndrome [Unknown]
  - Myalgia [Recovered/Resolved with Sequelae]
  - Product prescribing issue [Unknown]

NARRATIVE: CASE EVENT DATE: 2018
